FAERS Safety Report 7769700-X (Version None)
Quarter: 2011Q3

REPORT INFORMATION
  Report Type: 
  Country: None (occurrence: None)
  Receive Date: 20110922
  Receipt Date: 20100826
  Transmission Date: 20111222
  Serious: No
  Sender: FDA-Public Use
  Company Number: US-ASTRAZENECA-2007UW21519

PATIENT
  Age: 37 Year
  Sex: Female
  Weight: 115.2 kg

DRUGS (28)
  1. SEROQUEL [Suspect]
     Indication: ANXIETY
     Dosage: 100 - 300 MG
     Route: 048
     Dates: start: 20040818
  2. SEROQUEL [Suspect]
     Dosage: 50-200MG
     Route: 048
     Dates: start: 20041109, end: 20060710
  3. PREDNISONE [Concomitant]
     Dosage: 20 MG DISPENSED
     Dates: start: 20040927
  4. HYDROXYZINE [Concomitant]
     Dosage: 25 MG 2 TABLETS THRICE DAILY
     Dates: start: 20060112
  5. ALPRAZOLAM [Concomitant]
     Dosage: 1 MG DISPENSED
     Dates: start: 20040614
  6. BENZONATATE [Concomitant]
     Dates: start: 20051007
  7. ZOLOFT [Concomitant]
     Dates: start: 20060405
  8. LISINOPRIL [Concomitant]
     Dosage: 10 MG DISPENSED
     Dates: start: 20060710
  9. CRESTOR [Concomitant]
     Dates: start: 20060710
  10. OXYCODONE HCL AND ACETAMINOPHEN [Concomitant]
     Dosage: 7.5- 325 MG
     Dates: start: 20040919
  11. PROZAC [Concomitant]
  12. LEXAPRO [Concomitant]
     Dates: start: 20050810
  13. GEODON [Concomitant]
     Dates: start: 20060112
  14. GEODON [Concomitant]
     Dates: start: 20070601
  15. TRAZODONE HYDROCHLORIDE [Concomitant]
     Dosage: 50 MG DISPENSED
     Dates: start: 20060405
  16. ZYPREXA [Concomitant]
     Dates: start: 20050810
  17. ALLEGRA D 24 HOUR [Concomitant]
     Dosage: ONE TABLET TWICE DAILY
     Dates: start: 20051214
  18. ALBUTEROL [Concomitant]
     Dosage: 90 MCG DISPENSED
     Dates: start: 20040927
  19. OXYCODONE AND ACETAMINOPHEN [Concomitant]
     Dosage: 5 - 325 MG
     Dates: start: 20040525
  20. PREVACID [Concomitant]
     Dosage: 30 MG DISPENSED
     Dates: start: 20041213
  21. CITALOPRAM HYDROBROMIDE [Concomitant]
     Dates: start: 20051026
  22. SEROQUEL [Suspect]
     Indication: INSOMNIA
     Dosage: 100 - 300 MG
     Route: 048
     Dates: start: 20040818
  23. SEROQUEL [Suspect]
     Dosage: 50-200MG
     Route: 048
     Dates: start: 20041109, end: 20060710
  24. METFORMIN [Concomitant]
     Dates: start: 20060705
  25. HYDROCODONE BITARTRATE AND ACETAMINOPHEN [Concomitant]
     Dosage: 10 MG/650 MG
     Dates: start: 20050321
  26. AMBIEN [Concomitant]
     Dosage: 10 MG DISPENSED
     Dates: start: 20040614
  27. AMITRIPTYLINE HCL [Concomitant]
     Dates: start: 20050502
  28. METOCLOPRAM [Concomitant]
     Dosage: 10 MG DISPENSED
     Dates: start: 20041213

REACTIONS (5)
  - BLOOD CHOLESTEROL INCREASED [None]
  - HYPERLIPIDAEMIA [None]
  - TYPE 2 DIABETES MELLITUS [None]
  - DIABETIC COMPLICATION [None]
  - GESTATIONAL DIABETES [None]
